FAERS Safety Report 18736307 (Version 2)
Quarter: 2021Q1

REPORT INFORMATION
  Report Type: Spontaneous
  Country: US (occurrence: US)
  Receive Date: 20210113
  Receipt Date: 20210119
  Transmission Date: 20210419
  Serious: No
  Sender: FDA-Public Use
  Company Number: US-PFIZER INC-2021010661

PATIENT
  Age: 58 Year
  Sex: Female

DRUGS (2)
  1. PHENELZINE SULFATE. [Suspect]
     Active Substance: PHENELZINE SULFATE
     Dosage: 15 MG, 3X/DAY
     Dates: start: 202010
  2. PHENELZINE SULFATE. [Suspect]
     Active Substance: PHENELZINE SULFATE
     Dosage: 7.5 MG (HALF TABLET), 2X/DAY

REACTIONS (6)
  - Product dose omission issue [Unknown]
  - Irritability [Unknown]
  - Paraesthesia [Unknown]
  - Diarrhoea [Unknown]
  - Insomnia [Unknown]
  - Withdrawal syndrome [Unknown]
